FAERS Safety Report 23887865 (Version 1)
Quarter: 2024Q2

REPORT INFORMATION
  Report Type: Spontaneous
  Country: JP (occurrence: JP)
  Receive Date: 20240523
  Receipt Date: 20240523
  Transmission Date: 20240715
  Serious: Yes (Other)
  Sender: FDA-Public Use
  Company Number: JP-BAYER-2024A070594

PATIENT

DRUGS (2)
  1. EYLEA [Suspect]
     Active Substance: AFLIBERCEPT
     Indication: Polypoidal choroidal vasculopathy
     Dosage: SOLUTION FOR INJECTION IN PRE-FILLED SYRINGE, 40 MG/ML
  2. EYLEA [Suspect]
     Active Substance: AFLIBERCEPT
     Dosage: TOTAL OF 2 DOSES PRIOR TO THE EVENT, SOLUTION FOR INJECTION IN PFS, 40 MG/ML

REACTIONS (1)
  - Blindness [Recovering/Resolving]
